FAERS Safety Report 5317452-5 (Version None)
Quarter: 2007Q2

REPORT INFORMATION
  Report Type: 
  Country: None (occurrence: None)
  Receive Date: 20070507
  Receipt Date: 20070427
  Transmission Date: 20071010
  Serious: Yes (Other)
  Sender: FDA-Public Use
  Company Number: GB-NOVOPROD-262966

PATIENT
  Age: 71 Year
  Sex: Male

DRUGS (1)
  1. INSULATARD [Suspect]
     Indication: DIABETES MELLITUS
     Route: 058
     Dates: start: 20051107, end: 20061031

REACTIONS (2)
  - GRANULOMA [None]
  - PANNICULITIS [None]
